FAERS Safety Report 19025362 (Version 1)
Quarter: 2021Q1

REPORT INFORMATION
  Report Type: Spontaneous
  Country: US (occurrence: US)
  Receive Date: 20210316
  Receipt Date: 20210316
  Transmission Date: 20210420
  Serious: Yes (Hospitalization)
  Sender: FDA-Public Use
  Company Number: None

PATIENT
  Age: 57 Year
  Sex: Male
  Weight: 186 kg

DRUGS (1)
  1. PIPERACILLIN/TAZOBACTAM (PIPERACILLIN NA 2GM/TAZOBACTAM NA 0.25GM/50ML [Suspect]
     Active Substance: PIPERACILLIN SODIUM\TAZOBACTAM SODIUM
     Indication: TUBULOINTERSTITIAL NEPHRITIS
     Dosage: ?          OTHER STRENGTH:2GM, 0.25MG, 05ML;?
     Route: 042
     Dates: start: 20190523, end: 20190529

REACTIONS (2)
  - Acute kidney injury [None]
  - Nephritis [None]

NARRATIVE: CASE EVENT DATE: 20190529
